FAERS Safety Report 16445909 (Version 1)
Quarter: 2019Q2

REPORT INFORMATION
  Report Type: Spontaneous
  Country: US (occurrence: US)
  Receive Date: 20190618
  Receipt Date: 20190618
  Transmission Date: 20190711
  Serious: No
  Sender: FDA-Public Use
  Company Number: US-GE HEALTHCARE LIFE SCIENCES-2019CSU000317

PATIENT
  Age: 43 Year
  Sex: Female
  Weight: 102.49 kg

DRUGS (3)
  1. OMNIPAQUE [Suspect]
     Active Substance: IOHEXOL
     Indication: COMPUTERISED TOMOGRAM ABDOMEN
     Dosage: 100 ML, AT THE RATE OF 2ML/SEC, SINGLE
     Route: 042
     Dates: start: 20190116, end: 20190116
  2. OMNIPAQUE [Suspect]
     Active Substance: IOHEXOL
     Indication: URINARY TRACT INFECTION
  3. OMNIPAQUE [Suspect]
     Active Substance: IOHEXOL
     Indication: COMPUTERISED TOMOGRAM PELVIS

REACTIONS (1)
  - Urticaria [Recovered/Resolved]

NARRATIVE: CASE EVENT DATE: 20190116
